APPROVED DRUG PRODUCT: VALSARTAN
Active Ingredient: VALSARTAN
Strength: 4MG/ML
Dosage Form/Route: SOLUTION;ORAL
Application: A216460 | Product #001 | TE Code: AB
Applicant: RUBICON RESEARCH PRIVATE LTD
Approved: Jun 5, 2025 | RLD: No | RS: No | Type: RX